FAERS Safety Report 9570509 (Version 2)
Quarter: 2013Q4

REPORT INFORMATION
  Report Type: Spontaneous
  Country: US (occurrence: US)
  Receive Date: 20131001
  Receipt Date: 20131127
  Transmission Date: 20140711
  Serious: Yes (Hospitalization)
  Sender: FDA-Public Use
  Company Number: US-BIOGENIDEC-2013BI093645

PATIENT
  Age: 67 Year
  Sex: Male

DRUGS (2)
  1. AVONEX [Suspect]
     Indication: MULTIPLE SCLEROSIS
     Route: 030
     Dates: start: 20050220
  2. TYSABRI [Concomitant]
     Indication: MULTIPLE SCLEROSIS
     Dates: start: 20050111

REACTIONS (2)
  - Pulmonary embolism [Unknown]
  - Influenza like illness [Not Recovered/Not Resolved]
